FAERS Safety Report 7023619-0 (Version None)
Quarter: 2010Q3

REPORT INFORMATION
  Report Type: 
  Country: None (occurrence: None)
  Receive Date: 20100930
  Receipt Date: 20100930
  Transmission Date: 20110219
  Serious: Yes (Hospitalization)
  Sender: FDA-Public Use
  Company Number: None

PATIENT
  Age: 66 Year
  Sex: Male
  Weight: 65 kg

DRUGS (5)
  1. VIDAZA [Suspect]
     Dosage: 140MG DAYS 1-4, 15-18 SQ
     Route: 058
  2. ERLOTINIB HYDROCHLORIDE [Suspect]
     Dosage: 150MG DAYS 1-28 PO
     Route: 048
  3. VANCOMYCIN [Concomitant]
  4. CEFEPIME [Concomitant]
  5. AMOXICILLIN [Concomitant]

REACTIONS (5)
  - CONFUSIONAL STATE [None]
  - NEUTROPENIA [None]
  - PRODUCTIVE COUGH [None]
  - PYREXIA [None]
  - SPUTUM DISCOLOURED [None]
